FAERS Safety Report 6337189-3 (Version None)
Quarter: 2009Q3

REPORT INFORMATION
  Report Type: 
  Country: None (occurrence: None)
  Receive Date: 20090831
  Receipt Date: 20090821
  Transmission Date: 20100115
  Serious: Yes (Other)
  Sender: FDA-Public Use
  Company Number: 2009SP021635

PATIENT
  Age: 54 Year
  Sex: Male
  Weight: 80 kg

DRUGS (6)
  1. RIBAVIRIN [Suspect]
     Indication: HEPATITIS C
     Dosage: 1200 MG; QD; PO
     Route: 048
     Dates: start: 20090312, end: 20090704
  2. PEGINTERFERON ALFA-2A (PEGINTERFERON ALFA-2A) [Suspect]
     Indication: HEPATITIS C
     Dosage: 180 MCG; QW; SC
     Route: 058
     Dates: start: 20090312, end: 20090710
  3. BECONASE AQUEOUS [Concomitant]
  4. CO CODAMOL [Concomitant]
  5. FLUPENTIXOL DECANOATE [Concomitant]
  6. PROCYCLIDINE HYDROCHLORIDE [Concomitant]

REACTIONS (2)
  - RETINAL HAEMORRHAGE [None]
  - RETINAL ISCHAEMIA [None]
